FAERS Safety Report 10718556 (Version 2)
Quarter: 2015Q1

REPORT INFORMATION
  Report Type: Spontaneous
  Country: US (occurrence: US)
  Receive Date: 20150119
  Receipt Date: 20150119
  Transmission Date: 20150721
  Serious: No
  Sender: FDA-Public Use
  Company Number: US-UNITED THERAPEUTICS-UNT-2014-004914

PATIENT
  Age: 65 Year
  Sex: Female
  Weight: 90.25 kg

DRUGS (1)
  1. REMODULIN [Suspect]
     Active Substance: TREPROSTINIL
     Indication: COR PULMONALE CHRONIC
     Dosage: 0.005625 ?G/KG/MIN, CONTINUING
     Route: 058
     Dates: start: 20140630, end: 20140819

REACTIONS (12)
  - Malaise [Unknown]
  - Influenza [Unknown]
  - Nausea [Unknown]
  - Migraine [Unknown]
  - Insomnia [Recovered/Resolved]
  - Photophobia [Unknown]
  - Vomiting [Unknown]
  - Therapy cessation [Unknown]
  - Headache [Not Recovered/Not Resolved]
  - Infusion site erythema [Unknown]
  - Cough [Unknown]
  - Infusion site pain [Not Recovered/Not Resolved]

NARRATIVE: CASE EVENT DATE: 2014
